FAERS Safety Report 15406227 (Version 1)
Quarter: 2018Q3

REPORT INFORMATION
  Report Type: Spontaneous
  Country: US (occurrence: US)
  Receive Date: 20180920
  Receipt Date: 20180920
  Transmission Date: 20181010
  Serious: Yes (Other)
  Sender: FDA-Public Use
  Company Number: US-BEH-2018094878

PATIENT
  Age: 22 Year
  Sex: Male
  Weight: 136.5 kg

DRUGS (7)
  1. HAEGARDA [Suspect]
     Active Substance: HUMAN C1-ESTERASE INHIBITOR
     Indication: PROPHYLAXIS
  2. HAEGARDA [Suspect]
     Active Substance: HUMAN C1-ESTERASE INHIBITOR
     Indication: PRODUCT USED FOR UNKNOWN INDICATION
     Dosage: 9000 IU, BIW
     Route: 058
     Dates: start: 20180517
  3. IBUPROFEN. [Concomitant]
     Active Substance: IBUPROFEN
  4. CLARITIN?D NOS [Concomitant]
     Active Substance: LORATADINE\PSEUDOEPHEDRINE SULFATE
  5. FIRAZYR [Concomitant]
     Active Substance: ICATIBANT ACETATE
  6. EPINEPHRINE. [Concomitant]
     Active Substance: EPINEPHRINE
  7. TYLENOL [Concomitant]
     Active Substance: ACETAMINOPHEN

REACTIONS (2)
  - Drug ineffective [Unknown]
  - Vomiting [Unknown]

NARRATIVE: CASE EVENT DATE: 20180910
